FAERS Safety Report 9289127 (Version 1)
Quarter: 2013Q2

REPORT INFORMATION
  Report Type: Spontaneous
  Country: US (occurrence: None)
  Receive Date: 20130509
  Receipt Date: 20130509
  Transmission Date: 20140414
  Serious: Yes (Other)
  Sender: FDA-Public Use
  Company Number: ACO_35781_2013

PATIENT
  Age: 35 Year
  Sex: Male
  Weight: 108.8 kg

DRUGS (2)
  1. AMPYRA [Suspect]
     Indication: GAIT DISTURBANCE
     Route: 048
  2. AVONEX (INTERFERON BETA-1A) [Concomitant]

REACTIONS (4)
  - Abasia [None]
  - Pruritus [None]
  - Insomnia [None]
  - Multiple sclerosis relapse [None]
